FAERS Safety Report 17896850 (Version 1)
Quarter: 2020Q2

REPORT INFORMATION
  Report Type: Spontaneous
  Country: SY (occurrence: SY)
  Receive Date: 20200615
  Receipt Date: 20200615
  Transmission Date: 20200714
  Serious: Yes (Other)
  Sender: FDA-Public Use
  Company Number: SY-US-PROVELL PHARMACEUTICALS LLC-9167086

PATIENT
  Age: 35 Year
  Sex: Female

DRUGS (1)
  1. EUTHYROX [Suspect]
     Active Substance: LEVOTHYROXINE SODIUM
     Indication: POST PROCEDURAL HYPOTHYROIDISM
     Dosage: 150 EVERYDAY AND 100 ON FRIDAY AND SATURDAY

REACTIONS (3)
  - Blood thyroid stimulating hormone decreased [Not Recovered/Not Resolved]
  - Heart rate increased [Unknown]
  - Syncope [Unknown]
